FAERS Safety Report 22068924 (Version 1)
Quarter: 2023Q1

REPORT INFORMATION
  Report Type: Spontaneous
  Country: US (occurrence: US)
  Receive Date: 20230307
  Receipt Date: 20230307
  Transmission Date: 20230417
  Serious: No
  Sender: FDA-Public Use
  Company Number: US-AMNEAL PHARMACEUTICALS-2022-AMRX-01402

PATIENT
  Sex: Female

DRUGS (1)
  1. RYTARY [Suspect]
     Active Substance: CARBIDOPA\LEVODOPA
     Indication: Product used for unknown indication
     Dosage: 23.75/95MG, 4 CAPSULE 5 /DAY
     Route: 048

REACTIONS (4)
  - Dry skin [Unknown]
  - Urinary tract infection [Unknown]
  - Dry mouth [Unknown]
  - Constipation [Unknown]
